FAERS Safety Report 16489378 (Version 1)
Quarter: 2019Q2

REPORT INFORMATION
  Report Type: Spontaneous
  Country: US (occurrence: US)
  Receive Date: 20190628
  Receipt Date: 20190628
  Transmission Date: 20190711
  Serious: No
  Sender: FDA-Public Use
  Company Number: US-PFIZER INC-2019265643

PATIENT
  Sex: Male

DRUGS (1)
  1. AZITHROMYCIN ANHYDROUS. [Suspect]
     Active Substance: AZITHROMYCIN ANHYDROUS
     Dosage: 1000 MG, UNK (FOUR 250MG PILLS AT ONCE FOR FIRST DOSE)
     Route: 048
     Dates: start: 20190618

REACTIONS (1)
  - Abdominal pain upper [Unknown]
